FAERS Safety Report 9377975 (Version 2)
Quarter: 2013Q3

REPORT INFORMATION
  Report Type: Report from Study
  Country: KR (occurrence: KR)
  Receive Date: 20130701
  Receipt Date: 20130719
  Transmission Date: 20140515
  Serious: Yes (Death, Hospitalization)
  Sender: FDA-Public Use
  Company Number: KR-CELGENEUS-286-50794-13062234

PATIENT
  Age: 84 Year
  Sex: Male
  Weight: 69 kg

DRUGS (27)
  1. VIDAZA [Suspect]
     Indication: MYELODYSPLASTIC SYNDROME
     Dosage: 100 MILLIGRAM
     Route: 065
     Dates: start: 20130423
  2. VIDAZA [Suspect]
     Dosage: 100 MILLIGRAM
     Route: 065
     Dates: start: 20130522, end: 20130528
  3. REPAGLINIDE [Concomitant]
     Indication: PRODUCT USED FOR UNKNOWN INDICATION
     Route: 048
     Dates: start: 20130420, end: 20130616
  4. HUMAN INSULIN GLARGINE [Concomitant]
     Indication: PRODUCT USED FOR UNKNOWN INDICATION
     Route: 058
     Dates: start: 20130422, end: 20130612
  5. HUMAN INSULIN GLARGINE [Concomitant]
     Route: 058
     Dates: start: 20130613, end: 20130613
  6. HUMAN INSULIN GLARGINE [Concomitant]
     Route: 058
     Dates: start: 20130615, end: 20130615
  7. HUMAN INSULIN GLARGINE [Concomitant]
     Route: 058
     Dates: start: 20130616, end: 20130618
  8. HUMAN INSULIN GLARGINE [Concomitant]
     Route: 058
     Dates: start: 20130614, end: 20130614
  9. RENALMIN [Concomitant]
     Indication: PRODUCT USED FOR UNKNOWN INDICATION
     Route: 048
     Dates: start: 20121222, end: 20130616
  10. FERROUS SULFATE [Concomitant]
     Indication: PRODUCT USED FOR UNKNOWN INDICATION
     Route: 048
     Dates: start: 20121222, end: 20130616
  11. CALCIUM CARBONATE [Concomitant]
     Indication: PRODUCT USED FOR UNKNOWN INDICATION
     Route: 048
     Dates: start: 20130104
  12. CALCIUM CARBONATE [Concomitant]
     Route: 048
     Dates: start: 20130105, end: 20130612
  13. CHLORPHENAMINE MALEATE [Concomitant]
     Indication: PRODUCT USED FOR UNKNOWN INDICATION
     Route: 048
     Dates: start: 20130420, end: 20130613
  14. CHLORPHENAMINE MALEATE [Concomitant]
     Route: 041
     Dates: start: 20130422, end: 20130613
  15. CHLORPHENAMINE MALEATE [Concomitant]
     Route: 041
     Dates: start: 20130420, end: 20130612
  16. LACTITOL MONOHYDRATE [Concomitant]
     Indication: PRODUCT USED FOR UNKNOWN INDICATION
     Route: 048
     Dates: start: 20130407, end: 20130616
  17. AMLODIPINE [Concomitant]
     Indication: PRODUCT USED FOR UNKNOWN INDICATION
     Route: 048
     Dates: start: 20130414, end: 20130613
  18. CALCIUM POLYSTYRENE SULFONATE [Concomitant]
     Indication: PRODUCT USED FOR UNKNOWN INDICATION
     Route: 048
     Dates: start: 20130421, end: 20130616
  19. SYNERJET [Concomitant]
     Indication: PRODUCT USED FOR UNKNOWN INDICATION
     Route: 048
     Dates: start: 20130423, end: 20130616
  20. METOCLOPRAMIDE HCL [Concomitant]
     Indication: PRODUCT USED FOR UNKNOWN INDICATION
     Route: 048
     Dates: start: 20130424, end: 20130616
  21. CHLORHEXIDINE [Concomitant]
     Indication: PRODUCT USED FOR UNKNOWN INDICATION
     Route: 048
     Dates: start: 20130405, end: 20130616
  22. BENZYDAMINE [Concomitant]
     Indication: PRODUCT USED FOR UNKNOWN INDICATION
     Route: 048
     Dates: start: 20130422, end: 20130616
  23. PREDNISOLON [Concomitant]
     Indication: PRODUCT USED FOR UNKNOWN INDICATION
     Route: 065
     Dates: start: 20130426, end: 20130616
  24. CLOBETASOL PROPIONATE [Concomitant]
     Indication: PRODUCT USED FOR UNKNOWN INDICATION
     Route: 065
     Dates: start: 20130429
  25. MEGESTROL ACETATE [Concomitant]
     Indication: PRODUCT USED FOR UNKNOWN INDICATION
     Route: 048
     Dates: start: 20130523, end: 20130612
  26. MEGESTROL ACETATE [Concomitant]
     Route: 048
     Dates: start: 20130613, end: 20130616
  27. G-CSF [Concomitant]
     Indication: PRODUCT USED FOR UNKNOWN INDICATION
     Route: 065

REACTIONS (2)
  - Febrile neutropenia [Fatal]
  - Pneumonia [Fatal]
